FAERS Safety Report 5903640-3 (Version None)
Quarter: 2008Q3

REPORT INFORMATION
  Report Type: 
  Country: None (occurrence: None)
  Receive Date: 20080919
  Receipt Date: 20080828
  Transmission Date: 20090109
  Serious: No
  Sender: FDA-Public Use
  Company Number: US-WYE-H05779408

PATIENT
  Age: 53 Year
  Sex: Female
  Weight: 44.04 kg

DRUGS (3)
  1. PRISTIQ [Suspect]
     Indication: DEPRESSION
     Dosage: 50 MG 1X PER 1 DAY, ORAL
     Route: 048
     Dates: start: 20080820
  2. XANAX [Concomitant]
  3. PROTONIX [Concomitant]

REACTIONS (4)
  - CONDITION AGGRAVATED [None]
  - GASTROOESOPHAGEAL REFLUX DISEASE [None]
  - MICTURITION FREQUENCY DECREASED [None]
  - NAUSEA [None]
